FAERS Safety Report 18854633 (Version 2)
Quarter: 2021Q1

REPORT INFORMATION
  Report Type: Report from Study
  Country: BR (occurrence: BR)
  Receive Date: 20210205
  Receipt Date: 20210208
  Transmission Date: 20210420
  Serious: Yes (Other)
  Sender: FDA-Public Use
  Company Number: BR-UCBSA-2021004359

PATIENT
  Sex: Female
  Weight: 62 kg

DRUGS (1)
  1. CERTOLIZUMAB PEGOL [Suspect]
     Active Substance: CERTOLIZUMAB PEGOL
     Indication: RHEUMATOID ARTHRITIS
     Dosage: 400 MILLIGRAM, MONTHLY (QM)
     Route: 058

REACTIONS (7)
  - Stress [Unknown]
  - Weight decreased [Unknown]
  - Fatigue [Unknown]
  - Tuberculosis [Unknown]
  - Pain [Not Recovered/Not Resolved]
  - Abdominal wall wound [Unknown]
  - Pulmonary mass [Not Recovered/Not Resolved]
